FAERS Safety Report 10262445 (Version 1)
Quarter: 2014Q2

REPORT INFORMATION
  Report Type: Spontaneous
  Country: US (occurrence: US)
  Receive Date: 20140626
  Receipt Date: 20140626
  Transmission Date: 20141212
  Serious: Yes (Life-Threatening)
  Sender: FDA-Public Use
  Company Number: US-PFIZER INC-2014172174

PATIENT
  Age: 75 Year
  Sex: Male

DRUGS (9)
  1. BENZOCAINE [Suspect]
     Indication: ANAESTHESIA
     Dosage: UNK
  2. PROPOFOL [Concomitant]
     Indication: SEDATION
     Dosage: UNK
  3. AMLODIPINE BESILATE [Concomitant]
  4. ZAROXOLYN [Concomitant]
  5. LASIX [Concomitant]
  6. LISINOPRIL [Concomitant]
  7. ACETYLSALICYLIC ACID [Concomitant]
  8. CARVEDILOL [Concomitant]
  9. GLIPIZIDE [Concomitant]

REACTIONS (2)
  - Methaemoglobinaemia [Recovered/Resolved]
  - Hypoxia [Recovered/Resolved]
